FAERS Safety Report 22368082 (Version 1)
Quarter: 2023Q2

REPORT INFORMATION
  Report Type: Spontaneous
  Country: US (occurrence: None)
  Receive Date: 20230525
  Receipt Date: 20230525
  Transmission Date: 20230722
  Serious: Yes (Other)
  Sender: FDA-Public Use
  Company Number: None

PATIENT
  Age: 52 Year
  Sex: Male
  Weight: 101.25 kg

DRUGS (9)
  1. MONTELUKAST SODIUM [Suspect]
     Active Substance: MONTELUKAST SODIUM
     Indication: Asthma
     Dosage: FREQUENCY : DAILY;?
     Route: 048
     Dates: start: 20230424, end: 20230514
  2. MONTELUKAST SODIUM [Suspect]
     Active Substance: MONTELUKAST SODIUM
     Indication: Seasonal allergy
  3. LAMOTRIGINE [Concomitant]
     Active Substance: LAMOTRIGINE
  4. DIVALPROEX SODIUM [Concomitant]
     Active Substance: DIVALPROEX SODIUM
  5. PRAZOSIN [Concomitant]
     Active Substance: PRAZOSIN
  6. TRAZODONE [Concomitant]
     Active Substance: TRAZODONE HYDROCHLORIDE
  7. METHYLPHENIDATE [Concomitant]
     Active Substance: METHYLPHENIDATE
  8. METFORMIN [Concomitant]
     Active Substance: METFORMIN HYDROCHLORIDE
  9. triamterine [Concomitant]

REACTIONS (6)
  - Brain fog [None]
  - Memory impairment [None]
  - Libido increased [None]
  - Suicidal ideation [None]
  - Insomnia [None]
  - Dysphoria [None]

NARRATIVE: CASE EVENT DATE: 20230504
